FAERS Safety Report 20349952 (Version 1)
Quarter: 2022Q1

REPORT INFORMATION
  Report Type: Spontaneous
  Country: US (occurrence: None)
  Receive Date: 20220119
  Receipt Date: 20220119
  Transmission Date: 20220423
  Serious: Yes (Hospitalization)
  Sender: FDA-Public Use
  Company Number: None

PATIENT
  Sex: Female
  Weight: 179.6 kg

DRUGS (1)
  1. ASPIRIN [Suspect]
     Active Substance: ASPIRIN

REACTIONS (11)
  - Abdominal pain lower [None]
  - Nausea [None]
  - Neutrophil count increased [None]
  - Erythema [None]
  - Wound dehiscence [None]
  - Wound infection [None]
  - Vomiting [None]
  - Diarrhoea [None]
  - Transmission of an infectious agent via transplant [None]
  - Erythema [None]
  - Post procedural discomfort [None]

NARRATIVE: CASE EVENT DATE: 20210519
